FAERS Safety Report 11938870 (Version 1)
Quarter: 2016Q1

REPORT INFORMATION
  Report Type: Spontaneous
  Country: JP (occurrence: JP)
  Receive Date: 20160122
  Receipt Date: 20160122
  Transmission Date: 20160526
  Serious: Yes (Death, Other)
  Sender: FDA-Public Use
  Company Number: JP-GLAXOSMITHKLINE-JP2016JPN007077

PATIENT
  Age: 46 Year
  Sex: Male

DRUGS (4)
  1. HEPSERA [Suspect]
     Active Substance: ADEFOVIR DIPIVOXIL
     Dosage: UNK
  2. UNKNOWN DRUG [Concomitant]
     Active Substance: UNSPECIFIED INGREDIENT
     Dosage: UNK
  3. ZEFIX [Suspect]
     Active Substance: LAMIVUDINE
     Dosage: UNK
     Route: 048
  4. ENTECAVIR HYDRATE [Concomitant]
     Dosage: UNK

REACTIONS (2)
  - Hepatitis B [Unknown]
  - Hepatocellular carcinoma [Fatal]
